FAERS Safety Report 6492392-7 (Version None)
Quarter: 2009Q4

REPORT INFORMATION
  Report Type: 
  Country: None (occurrence: None)
  Receive Date: 20091214
  Receipt Date: 20091203
  Transmission Date: 20100525
  Serious: Yes (Other)
  Sender: FDA-Public Use
  Company Number: CA-JNJFOC-20091104387

PATIENT
  Age: 51 Year
  Sex: Male
  Weight: 49.9 kg

DRUGS (13)
  1. PREZISTA [Suspect]
     Indication: HIV INFECTION
     Route: 048
     Dates: start: 20091029, end: 20091029
  2. INTELENCE [Suspect]
     Indication: HIV INFECTION
     Route: 048
     Dates: start: 20091029, end: 20091029
  3. RITONAVIR [Suspect]
     Indication: HIV INFECTION
     Dates: start: 20091029, end: 20091029
  4. ADVAIR DISKUS 100/50 [Interacting]
     Indication: DRUG USE FOR UNKNOWN INDICATION
     Route: 055
  5. 3TC [Concomitant]
     Indication: HIV INFECTION
  6. HUMALOG [Concomitant]
     Route: 058
  7. LANTUS [Concomitant]
     Route: 058
  8. RAMIPRIL [Concomitant]
  9. ASPIRIN [Concomitant]
  10. VENTOLIN [Concomitant]
  11. M.V.I. [Concomitant]
  12. CLARITIN [Concomitant]
     Route: 048
  13. FLUCONAZOLE [Concomitant]

REACTIONS (2)
  - DRUG INTERACTION [None]
  - HYPERGLYCAEMIA [None]
